FAERS Safety Report 8561616-4 (Version None)
Quarter: 2012Q3

REPORT INFORMATION
  Report Type: 
  Country: None (occurrence: None)
  Receive Date: 20120727
  Receipt Date: 20120727
  Transmission Date: 20120928
  Serious: Yes (Hospitalization)
  Sender: FDA-Public Use
  Company Number: None

PATIENT
  Age: 78 Year
  Sex: Female
  Weight: 62 kg

DRUGS (28)
  1. PROTONIX [Concomitant]
  2. KLONOPIN [Concomitant]
  3. DILTIAZEM [Concomitant]
  4. PREP H [Concomitant]
  5. HYDROCORTISONE [Concomitant]
  6. LISINOPRIL [Concomitant]
  7. LEXAPRO [Concomitant]
  8. MIRALAX [Concomitant]
  9. FIBERCON [Concomitant]
  10. PROPYLENE GLYCOL [Concomitant]
  11. CLONAZEPAM [Concomitant]
  12. FERROUS SULFATE TAB [Concomitant]
  13. APAP TAB [Concomitant]
  14. ERGOCALCIFEROL [Concomitant]
  15. ULTRAM [Concomitant]
  16. TRAMADOL HCL [Concomitant]
  17. MOM [Concomitant]
  18. CARVEDILOL [Concomitant]
  19. COUMADIN [Suspect]
     Indication: ATRIAL FIBRILLATION
     Dosage: 5 MG DAILY PO CHRONIC
     Route: 048
  20. SENNA-S [Concomitant]
  21. AROMAXIN [Concomitant]
  22. COD LIVER OIL [Concomitant]
  23. ARMODAFINIL [Suspect]
     Indication: ORAL CANDIDIASIS
     Dosage: 100 MG, DAILY, PO
     Route: 048
  24. HALDOL [Concomitant]
  25. COUMADIN [Concomitant]
  26. COLACE [Concomitant]
  27. DONEPEZIL HCL [Concomitant]
  28. M.V.I. [Concomitant]

REACTIONS (8)
  - CONFUSIONAL STATE [None]
  - ENCEPHALOPATHY [None]
  - DRUG INTERACTION [None]
  - EPISTAXIS [None]
  - HYPOPHAGIA [None]
  - INTERNATIONAL NORMALISED RATIO INCREASED [None]
  - THROMBOSIS [None]
  - BREAST CANCER METASTATIC [None]
